FAERS Safety Report 20010589 (Version 4)
Quarter: 2022Q4

REPORT INFORMATION
  Report Type: Report from Study
  Country: DE (occurrence: DE)
  Receive Date: 20211029
  Receipt Date: 20221002
  Transmission Date: 20230113
  Serious: Yes (Death, Hospitalization, Other)
  Sender: FDA-Public Use
  Company Number: DE-NOVARTISPH-NVSC2021DE041420

PATIENT
  Sex: Male
  Weight: 77 kg

DRUGS (5)
  1. TASIGNA [Suspect]
     Active Substance: NILOTINIB
     Indication: Chronic myeloid leukaemia
     Dosage: 600 MG, QD
     Route: 048
     Dates: start: 20201001, end: 20201029
  2. TASIGNA [Suspect]
     Active Substance: NILOTINIB
     Dosage: 400 MG, QD
     Route: 048
     Dates: start: 20201030, end: 20201112
  3. TASIGNA [Suspect]
     Active Substance: NILOTINIB
     Dosage: 300 MG, QD
     Route: 048
     Dates: start: 20201113, end: 20210107
  4. TASIGNA [Suspect]
     Active Substance: NILOTINIB
     Dosage: 100 MG, QD
     Route: 048
     Dates: start: 20210108, end: 20210415
  5. TASIGNA [Suspect]
     Active Substance: NILOTINIB
     Dosage: 200 MG, QD
     Route: 048
     Dates: start: 20210416

REACTIONS (6)
  - Death [Fatal]
  - Acute myocardial infarction [Recovering/Resolving]
  - Anaemia [Recovered/Resolved]
  - Nocturia [Recovered/Resolved]
  - Haematotoxicity [Unknown]
  - Dyspnoea [Not Recovered/Not Resolved]

NARRATIVE: CASE EVENT DATE: 20201022
